FAERS Safety Report 6538948-4 (Version None)
Quarter: 2010Q1

REPORT INFORMATION
  Report Type: 
  Country: None (occurrence: None)
  Receive Date: 20100114
  Receipt Date: 20100114
  Transmission Date: 20100710
  Serious: Yes (Other)
  Sender: FDA-Public Use
  Company Number: None

PATIENT
  Age: 58 Year
  Sex: Female
  Weight: 52.6173 kg

DRUGS (1)
  1. ZICAM INTENSE SINUS RELIEF--GEL OXYMETAZOLINE HCU 0.05% ZICAM [Suspect]
     Indication: NASAL CONGESTION
     Dosage: 2 OR THREE SQUIRTS PER NOSTRIL ONCE EVERY 10-12 H NASAL
     Route: 045
     Dates: start: 20091229, end: 20100101

REACTIONS (7)
  - AGEUSIA [None]
  - ANOSMIA [None]
  - ANXIETY [None]
  - DECREASED APPETITE [None]
  - HYPOPHAGIA [None]
  - PHARYNGEAL DISORDER [None]
  - POSTNASAL DRIP [None]
